FAERS Safety Report 25493430 (Version 1)
Quarter: 2025Q2

REPORT INFORMATION
  Report Type: Spontaneous
  Country: ES (occurrence: ES)
  Receive Date: 20250630
  Receipt Date: 20250630
  Transmission Date: 20250717
  Serious: Yes (Other)
  Sender: MYLAN
  Company Number: None

PATIENT
  Age: 62 Year
  Sex: Female

DRUGS (1)
  1. ATORVASTATIN [Suspect]
     Active Substance: ATORVASTATIN
     Indication: Intermittent claudication
     Dosage: 80 MILLIGRAM,QD,(28 TABLETS)
     Dates: start: 20250320, end: 20250424

REACTIONS (1)
  - Respiratory distress [Unknown]

NARRATIVE: CASE EVENT DATE: 20250320
